FAERS Safety Report 21986134 (Version 4)
Quarter: 2023Q4

REPORT INFORMATION
  Report Type: Spontaneous
  Country: US (occurrence: US)
  Receive Date: 20230213
  Receipt Date: 20231005
  Transmission Date: 20240110
  Serious: Yes (Hospitalization, Other)
  Sender: FDA-Public Use
  Company Number: US-OTSUKA-2023_003307

PATIENT
  Age: 18 Year
  Sex: Female
  Weight: 57.92 kg

DRUGS (14)
  1. ABILIFY [Suspect]
     Active Substance: ARIPIPRAZOLE
     Indication: Bipolar II disorder
     Dosage: 6 MG, QD
     Route: 048
     Dates: start: 20221117, end: 20221207
  2. ABILIFY [Suspect]
     Active Substance: ARIPIPRAZOLE
     Dosage: 6 MG, QD
     Route: 048
     Dates: start: 20221211
  3. LAMICTAL [Suspect]
     Active Substance: LAMOTRIGINE
     Indication: Bipolar II disorder
     Dosage: 50 MG, QD
     Route: 048
     Dates: start: 20221128, end: 20221207
  4. LAMICTAL [Suspect]
     Active Substance: LAMOTRIGINE
     Dosage: 50 MG, QD
     Route: 048
     Dates: start: 20221211, end: 20221216
  5. LAMICTAL [Suspect]
     Active Substance: LAMOTRIGINE
     Dosage: 100 MG, QD
     Route: 048
     Dates: start: 20221216
  6. PRAZOSIN [Concomitant]
     Active Substance: PRAZOSIN
     Indication: Bipolar II disorder
     Dosage: UNK
     Route: 048
     Dates: start: 20221117, end: 20230115
  7. LEXAPRO [Concomitant]
     Active Substance: ESCITALOPRAM OXALATE
     Indication: Anxiety
     Dosage: UNK
     Route: 048
     Dates: start: 2017, end: 20220314
  8. LEXAPRO [Concomitant]
     Active Substance: ESCITALOPRAM OXALATE
     Dosage: UNK
     Route: 048
     Dates: start: 20220414, end: 20220504
  9. LEXAPRO [Concomitant]
     Active Substance: ESCITALOPRAM OXALATE
     Dosage: UNK
     Route: 048
     Dates: start: 20220505
  10. FLUTICASONE PROPIONATE [Concomitant]
     Active Substance: FLUTICASONE PROPIONATE
     Indication: Asthma
     Dosage: UNK
     Route: 048
     Dates: start: 20221117
  11. FLUTICASONE PROPIONATE [Concomitant]
     Active Substance: FLUTICASONE PROPIONATE
     Dosage: UNK
     Route: 065
     Dates: start: 2019
  12. LO LOESTRIN FE [Concomitant]
     Active Substance: ETHINYL ESTRADIOL\NORETHINDRONE ACETATE
     Indication: Contraception
     Dosage: UNK
     Route: 048
     Dates: start: 20220314
  13. DAPSONE [Concomitant]
     Active Substance: DAPSONE
     Indication: Acne
     Dosage: UNK
     Route: 061
     Dates: start: 20210402
  14. FLOVENT [Concomitant]
     Active Substance: FLUTICASONE PROPIONATE
     Indication: Asthma
     Dosage: UNK UNK, QD  (2 PUFF)
     Route: 048
     Dates: start: 20221117

REACTIONS (5)
  - Intrusive thoughts [Recovered/Resolved]
  - Intentional self-injury [Recovered/Resolved]
  - Depression [Recovered/Resolved]
  - Product dose omission issue [Unknown]
  - Product use in unapproved indication [Unknown]

NARRATIVE: CASE EVENT DATE: 20221117
